FAERS Safety Report 16153987 (Version 2)
Quarter: 2019Q2

REPORT INFORMATION
  Report Type: Spontaneous
  Country: US (occurrence: US)
  Receive Date: 20190403
  Receipt Date: 20190422
  Transmission Date: 20190711
  Serious: No
  Sender: FDA-Public Use
  Company Number: US-PFIZER INC-2019142167

PATIENT
  Sex: Female

DRUGS (1)
  1. AMLODIPINE BESILATE [Suspect]
     Active Substance: AMLODIPINE BESYLATE
     Dosage: UNK , DAILY, (}5MG, DAILY)

REACTIONS (3)
  - Drug hypersensitivity [Unknown]
  - Oedema peripheral [Unknown]
  - Peripheral swelling [Unknown]
